FAERS Safety Report 15716432 (Version 1)
Quarter: 2018Q4

REPORT INFORMATION
  Report Type: Spontaneous
  Country: GB (occurrence: GB)
  Receive Date: 20181213
  Receipt Date: 20181213
  Transmission Date: 20190205
  Serious: Yes (Other)
  Sender: FDA-Public Use
  Company Number: GB-TEVA-2018-GB-986150

PATIENT
  Age: 68 Year
  Sex: Male

DRUGS (19)
  1. DIGOXIN. [Concomitant]
     Active Substance: DIGOXIN
     Indication: CARDIAC DISORDER
     Dosage: 125 MICROGRAM DAILY;
     Route: 048
     Dates: start: 20040101
  2. FRUSEMIDE [Concomitant]
     Active Substance: FUROSEMIDE
     Dosage: 40 MILLIGRAM DAILY;
     Route: 048
     Dates: start: 20070801
  3. METOCLOPRAMIDE. [Concomitant]
     Active Substance: METOCLOPRAMIDE
     Dosage: 10-20MG, PRN
     Route: 048
     Dates: start: 20070501
  4. ADCAL-D3 [Concomitant]
     Active Substance: CALCIUM CARBONATE\CHOLECALCIFEROL
     Dosage: 1.5 GRAM DAILY;
     Route: 048
     Dates: start: 20070401
  5. ALENDRONIC ACID [Concomitant]
     Active Substance: ALENDRONIC ACID
     Dosage: 10 MILLIGRAM DAILY;
     Route: 048
     Dates: start: 20070401
  6. EZETIMIBE. [Concomitant]
     Active Substance: EZETIMIBE
     Indication: HYPERCHOLESTEROLAEMIA
     Dosage: 10 MILLIGRAM DAILY;
     Route: 048
     Dates: start: 20070401
  7. COTRIMOXAZOLE [Concomitant]
     Active Substance: SULFAMETHOXAZOLE\TRIMETHOPRIM
     Dosage: 960 MILLIGRAM DAILY;
     Route: 048
     Dates: start: 20070501
  8. ACICLOVIR [Concomitant]
     Active Substance: ACYCLOVIR
     Dosage: 1.2 GRAM DAILY;
     Route: 048
     Dates: start: 20070501
  9. THALIDOMIDE [Concomitant]
     Active Substance: THALIDOMIDE
     Dosage: 100-200MG/DAY
     Route: 048
     Dates: start: 20070801
  10. SIMVASTATIN. [Concomitant]
     Active Substance: SIMVASTATIN
     Indication: BLOOD CHOLESTEROL INCREASED
     Dosage: 40 MILLIGRAM DAILY;
     Route: 048
     Dates: start: 200704, end: 20070401
  11. GRANISETRON [Concomitant]
     Active Substance: GRANISETRON
     Indication: VOMITING
     Dosage: 2 MILLIGRAM DAILY;
     Route: 048
     Dates: start: 20070501
  12. DEXAMETHASONE. [Concomitant]
     Active Substance: DEXAMETHASONE
     Dosage: 40 MILLIGRAM DAILY;
     Route: 048
     Dates: start: 20070401
  13. MOVICOL [Concomitant]
     Active Substance: POLYETHYLENE GLYCOL 3350\POTASSIUM CHLORIDE\SODIUM BICARBONATE\SODIUM CHLORIDE
     Indication: CONSTIPATION
     Route: 048
     Dates: start: 20070401
  14. MORPHINE [Concomitant]
     Active Substance: MORPHINE
     Indication: PAIN
     Dosage: 60 MILLIGRAM DAILY;
     Route: 048
     Dates: start: 20070401
  15. OMEPRAZOLE. [Concomitant]
     Active Substance: OMEPRAZOLE
     Dosage: 20 MILLIGRAM DAILY;
     Route: 048
     Dates: start: 20070401
  16. FLUCONAZOLE. [Concomitant]
     Active Substance: FLUCONAZOLE
     Dosage: 50 MILLIGRAM DAILY;
     Route: 048
     Dates: start: 200704
  17. ALLOPURINOL. [Concomitant]
     Active Substance: ALLOPURINOL
     Indication: HYPERURICAEMIA
     Dosage: 300 MILLIGRAM DAILY;
     Route: 048
     Dates: start: 20070401
  18. WARFARIN [Concomitant]
     Active Substance: WARFARIN
     Indication: ATRIAL FIBRILLATION
     Dosage: DOSAGE VARIABLE
     Route: 048
     Dates: start: 20070601
  19. DISODIUM PAMIDRONATE [Suspect]
     Active Substance: PAMIDRONATE DISODIUM
     Indication: PLASMA CELL MYELOMA
     Route: 042
     Dates: start: 20070509, end: 20070725

REACTIONS (3)
  - Osteonecrosis [Recovered/Resolved]
  - Pain [Recovered/Resolved]
  - Bone disorder [Recovered/Resolved]

NARRATIVE: CASE EVENT DATE: 20070619
